FAERS Safety Report 6235374-2 (Version None)
Quarter: 2009Q2

REPORT INFORMATION
  Report Type: 
  Country: None (occurrence: None)
  Receive Date: 20090618
  Receipt Date: 20081015
  Transmission Date: 20091009
  Serious: No
  Sender: FDA-Public Use
  Company Number: US-ASTRAZENECA-2008UW09183

PATIENT
  Age: 9498 Day
  Sex: Female

DRUGS (5)
  1. ENTOCORT EC [Suspect]
     Indication: CROHN'S DISEASE
     Route: 048
  2. ENTOCORT EC [Suspect]
     Dosage: 3 TABS X 2 WK, THEN 2 QD X1 MONTH, THEN 1 QD X 1MONTH, THEN OFF
     Route: 048
  3. ENTOCORT EC [Suspect]
     Route: 048
     Dates: start: 20080502
  4. NEXIUM [Concomitant]
  5. YAZ [Concomitant]

REACTIONS (9)
  - ABDOMINAL PAIN [None]
  - ANAL FISSURE [None]
  - CONDITION AGGRAVATED [None]
  - CONSTIPATION [None]
  - CROHN'S DISEASE [None]
  - DIARRHOEA [None]
  - DYSGEUSIA [None]
  - PAIN [None]
  - RECTAL HAEMORRHAGE [None]
